FAERS Safety Report 9181348 (Version 2)
Quarter: 2013Q2

REPORT INFORMATION
  Report Type: Spontaneous
  Country: US (occurrence: US)
  Receive Date: 20130322
  Receipt Date: 20130415
  Transmission Date: 20140414
  Serious: No
  Sender: FDA-Public Use
  Company Number: US-PFIZER INC-2013087832

PATIENT
  Age: 60 Year
  Sex: Female
  Weight: 65.76 kg

DRUGS (2)
  1. PRISTIQ [Suspect]
     Indication: EMOTIONAL DISORDER
     Dosage: 50 MG, DAILY
     Route: 048
     Dates: start: 2010, end: 201302
  2. TOPROL XL [Concomitant]
     Indication: HEART RATE IRREGULAR
     Dosage: 25 MG, DAILY

REACTIONS (2)
  - Nausea [Recovered/Resolved]
  - Vertigo [Recovered/Resolved]
